FAERS Safety Report 19616131 (Version 1)
Quarter: 2021Q3

REPORT INFORMATION
  Report Type: Spontaneous
  Country: US (occurrence: US)
  Receive Date: 20210727
  Receipt Date: 20210727
  Transmission Date: 20211014
  Serious: No
  Sender: FDA-Public Use
  Company Number: US-ABBVIE-21K-163-3839394-00

PATIENT
  Age: 59 Year
  Sex: Female

DRUGS (1)
  1. SYNTHROID [Suspect]
     Active Substance: LEVOTHYROXINE SODIUM
     Indication: PRODUCT USED FOR UNKNOWN INDICATION
     Route: 048

REACTIONS (19)
  - Nasal congestion [Unknown]
  - Dizziness [Unknown]
  - Back pain [Unknown]
  - Pain [Unknown]
  - Paraesthesia [Unknown]
  - Sensory disturbance [Unknown]
  - Malaise [Unknown]
  - Eye disorder [Unknown]
  - Pain in extremity [Unknown]
  - Abdominal discomfort [Unknown]
  - Musculoskeletal stiffness [Unknown]
  - Oropharyngeal pain [Unknown]
  - Muscle spasms [Unknown]
  - Feeling cold [Unknown]
  - Vision blurred [Unknown]
  - Peripheral coldness [Unknown]
  - Dyspepsia [Unknown]
  - Dry mouth [Unknown]
  - Ear pain [Unknown]
